FAERS Safety Report 8307984-X (Version None)
Quarter: 2012Q2

REPORT INFORMATION
  Report Type: 
  Country: None (occurrence: None)
  Receive Date: 20120424
  Receipt Date: 20111124
  Transmission Date: 20120825
  Serious: Yes (Hospitalization)
  Sender: FDA-Public Use
  Company Number: JP-GLAXOSMITHKLINE-B0765417A

PATIENT
  Sex: Female

DRUGS (8)
  1. LIVALO [Concomitant]
     Dosage: 2MG PER DAY
     Route: 048
  2. CELECTOL [Concomitant]
     Dosage: 200MG PER DAY
     Route: 048
  3. LEVOTHYROXINE SODIUM [Concomitant]
     Dosage: 100MG PER DAY
     Route: 048
  4. TRICHLORMETHIAZIDE [Concomitant]
     Dosage: 1MG TWICE PER DAY
     Route: 048
  5. LAMICTAL [Suspect]
     Indication: EPILEPSY
     Dosage: 25MG PER DAY
     Route: 048
     Dates: start: 20111004, end: 20111030
  6. ZONISAMIDE [Suspect]
     Indication: EPILEPSY
     Dosage: 100MG PER DAY
     Route: 048
     Dates: start: 20111004, end: 20111030
  7. CONIEL [Concomitant]
     Dosage: 12MG PER DAY
     Route: 048
  8. ASPIRIN [Concomitant]
     Dosage: 100MG PER DAY
     Route: 048

REACTIONS (9)
  - DRUG RASH WITH EOSINOPHILIA AND SYSTEMIC SYMPTOMS [None]
  - HEPATIC FUNCTION ABNORMAL [None]
  - RASH [None]
  - RENAL DISORDER [None]
  - PYREXIA [None]
  - HYPERKALAEMIA [None]
  - GENERALISED ERYTHEMA [None]
  - PLATELET COUNT DECREASED [None]
  - PURPURA [None]
